FAERS Safety Report 11026765 (Version 7)
Quarter: 2015Q3

REPORT INFORMATION
  Report Type: Spontaneous
  Country: CA (occurrence: CA)
  Receive Date: 20150414
  Receipt Date: 20150930
  Transmission Date: 20151125
  Serious: Yes (Hospitalization, Other)
  Sender: FDA-Public Use
  Company Number: CA-TEVA-544510USA

PATIENT
  Age: 84 Year
  Sex: Male
  Weight: 67.2 kg

DRUGS (31)
  1. TREANDA [Suspect]
     Active Substance: BENDAMUSTINE HYDROCHLORIDE
     Indication: NON-HODGKIN^S LYMPHOMA UNSPECIFIED HISTOLOGY INDOLENT
     Route: 042
     Dates: start: 20150107, end: 20150205
  2. BENADRYL [Concomitant]
     Active Substance: DIPHENHYDRAMINE HYDROCHLORIDE
     Dosage: DAILY DOSE NOT REPORTED (FREQUENCY NOT REPORTED)
  3. BACTRIM DS [Concomitant]
     Active Substance: SULFAMETHOXAZOLE\TRIMETHOPRIM
     Dosage: DAILY DOSE NOT REPORTED (FREQUENCY NOT REPORTED)
     Dates: start: 20150401
  4. IDELALISIB [Suspect]
     Active Substance: IDELALISIB
     Dosage: 300 MILLIGRAM DAILY;
     Route: 048
     Dates: start: 20141016, end: 20141029
  5. NEULASTA [Suspect]
     Active Substance: PEGFILGRASTIM
     Indication: PROPHYLAXIS
     Dosage: .2143 MILLIGRAM DAILY;
     Route: 058
     Dates: start: 20150110, end: 20150207
  6. APO-LEVOCARB [Concomitant]
     Active Substance: CARBIDOPA\LEVODOPA
     Dosage: DAILY DOSE NOT REPORTED (FREQUENCY NOT REPORTED)
     Dates: start: 2004
  7. K-DUR [Concomitant]
     Active Substance: POTASSIUM CHLORIDE
     Dosage: DAILY DOSE NOT REPORTED (FREQUENCY NOT REPORTED)
     Dates: start: 20150217, end: 20150218
  8. TREANDA [Suspect]
     Active Substance: BENDAMUSTINE HYDROCHLORIDE
     Route: 042
     Dates: start: 20141016, end: 20141113
  9. SYNTHROID [Concomitant]
     Active Substance: LEVOTHYROXINE SODIUM
     Dosage: DAILY DOSE NOT REPORTED (FREQUENCY NOT REPORTED)
  10. TYLENOL [Concomitant]
     Active Substance: ACETAMINOPHEN
     Dosage: DAILY DOSE NOT REPORTED (FREQUENCY NOT REPORTED)
  11. STEMETIL [Concomitant]
     Active Substance: PROCHLORPERAZINE MALEATE
     Dosage: DAILY DOSE NOT REPORTED (FREQUENCY NOT REPORTED)
  12. RITUXAN [Suspect]
     Active Substance: RITUXIMAB
     Indication: NON-HODGKIN^S LYMPHOMA UNSPECIFIED HISTOLOGY INDOLENT
     Route: 042
     Dates: start: 20141016, end: 20150204
  13. ARISTOCORT [Concomitant]
     Active Substance: TRIAMCINOLONE DIACETATE
     Dosage: DAILY DOSE NOT REPORTED (FREQUENCY NOT REPORTED)
  14. COLCHICINE. [Concomitant]
     Active Substance: COLCHICINE
     Dosage: DAILY DOSE NOT REPORTED (FREQUENCY NOT REPORTED)
  15. IMODIUM [Concomitant]
     Active Substance: LOPERAMIDE HYDROCHLORIDE
     Dosage: DAILY DOSE NOT REPORTED (FREQUENCY NOT REPORTED)
  16. VITAMIN D [Concomitant]
     Active Substance: CHOLECALCIFEROL
     Dosage: DAILY DOSE NOT REPORTED (FREQUENCY NOT REPORTED)
     Dates: start: 20150217
  17. PROLOPA [Concomitant]
     Active Substance: BENSERAZIDE\LEVODOPA
     Dosage: DAILY DOSE NOT REPORTED (FREQUENCY NOT REPORTED)
     Dates: start: 20150220, end: 20150401
  18. ALLOPURINOL. [Concomitant]
     Active Substance: ALLOPURINOL
     Dosage: DAILY DOSE NOT REPORTED (FREQUENCY NOT REPORTED)
     Dates: start: 2006
  19. SOLU-MEDROL [Concomitant]
     Active Substance: METHYLPREDNISOLONE SODIUM SUCCINATE
     Dosage: DAILY DOSE NOT REPORTED (FREQUENCY NOT REPORTED)
  20. MAGNESIUM SULFATE. [Concomitant]
     Active Substance: MAGNESIUM SULFATE
     Dosage: DAILY DOSE NOT REPORTED (FREQUENCY NOT REPORTED)
     Dates: start: 20150217, end: 20150217
  21. ELIQUIS [Concomitant]
     Active Substance: APIXABAN
     Dosage: DAILY DOSE NOT REPORTED (FREQUENCY NOT REPORTED)
     Dates: start: 20140403
  22. NORVASC [Concomitant]
     Active Substance: AMLODIPINE BESYLATE
     Dosage: DAILY DOSE NOT REPORTED (FREQUENCY NOT REPORTED)
     Dates: start: 2001, end: 20150304
  23. ZOFRAN [Concomitant]
     Active Substance: ONDANSETRON HYDROCHLORIDE
     Dosage: DAILY DOSE NOT REPORTED (FREQUENCY NOT REPORTED)
  24. ATARAX [Concomitant]
     Active Substance: HYDROXYZINE\HYDROXYZINE HYDROCHLORIDE
     Dosage: DAILY DOSE NOT REPORTED (FREQUENCY NOT REPORTED)
  25. APO-HYDROXYZINE [Concomitant]
     Active Substance: HYDROXYZINE HYDROCHLORIDE
     Dosage: DAILY DOSE NOT REPORTED (FREQUENCY NOT REPORTED)
  26. LAX-A-DAY [Concomitant]
     Dosage: DAILY DOSE NOT REPORTED (FREQUENCY NOT REPORTED)
  27. IDELALISIB [Suspect]
     Active Substance: IDELALISIB
     Indication: NON-HODGKIN^S LYMPHOMA UNSPECIFIED HISTOLOGY INDOLENT
     Dosage: 200 MILLIGRAM DAILY;
     Route: 048
     Dates: start: 20141210, end: 20150213
  28. LASIX [Concomitant]
     Active Substance: FUROSEMIDE
     Dosage: DAILY DOSE NOT REPORTED (FREQUENCY NOT REPORTED)
     Dates: start: 20150121, end: 20150218
  29. MAGLUCATE [Concomitant]
     Dosage: DAILY DOSE NOT REPORTED (FREQUENCY NOT REPORTED)
  30. METFORMIN [Concomitant]
     Active Substance: METFORMIN HYDROCHLORIDE
     Dosage: DAILY DOSE NOT REPORTED (FREQUENCY NOT REPORTED)
  31. VALTREX [Concomitant]
     Active Substance: VALACYCLOVIR HYDROCHLORIDE
     Dosage: DAILY DOSE NOT REPORTED (FREQUENCY NOT REPORTED)
     Dates: start: 20150401

REACTIONS (11)
  - Mixed dementia [Recovered/Resolved with Sequelae]
  - Asthenia [Unknown]
  - Muscular weakness [Unknown]
  - Mobility decreased [Unknown]
  - Activities of daily living impaired [Unknown]
  - Decreased appetite [Unknown]
  - Fatigue [Recovered/Resolved with Sequelae]
  - Dehydration [Unknown]
  - Diarrhoea [Unknown]
  - Weight decreased [Not Recovered/Not Resolved]
  - Fall [Unknown]

NARRATIVE: CASE EVENT DATE: 201502
